FAERS Safety Report 12557980 (Version 3)
Quarter: 2016Q3

REPORT INFORMATION
  Report Type: Spontaneous
  Country: BR (occurrence: BR)
  Receive Date: 20160714
  Receipt Date: 20160805
  Transmission Date: 20161109
  Serious: Yes (Hospitalization, Other)
  Sender: FDA-Public Use
  Company Number: BR-ABBVIE-16P-020-1675736-00

PATIENT
  Sex: Male
  Weight: 146.5 kg

DRUGS (15)
  1. GARDENAL [Concomitant]
     Active Substance: PHENOBARBITAL
     Indication: PRODUCT USED FOR UNKNOWN INDICATION
     Dates: start: 2009
  2. DEPAKENE [Interacting]
     Active Substance: VALPROIC ACID
     Route: 048
  3. DEPAKENE [Interacting]
     Active Substance: VALPROIC ACID
     Dosage: 3 TABLETS
     Route: 065
     Dates: start: 2014
  4. SYNTHROID [Suspect]
     Active Substance: LEVOTHYROXINE SODIUM
     Dosage: DAILY DOSE: 100 MCG; BEFORE DAWN
     Route: 048
     Dates: start: 201605
  5. HIDANTAL [Interacting]
     Active Substance: PHENYTOIN SODIUM
     Indication: SEIZURE
     Route: 065
     Dates: start: 2014, end: 2014
  6. SYNTHROID [Suspect]
     Active Substance: LEVOTHYROXINE SODIUM
     Route: 065
     Dates: end: 201605
  7. LOSARTAN. [Concomitant]
     Active Substance: LOSARTAN
     Indication: HYPERTENSION
     Dosage: MORNING / NIGHT
     Route: 048
     Dates: start: 201604
  8. DEPAKENE [Suspect]
     Active Substance: VALPROIC ACID
     Indication: EPILEPSY
     Dosage: 500 MG; MORNING / NIGHT
     Route: 048
     Dates: start: 2009
  9. SYNTHROID [Suspect]
     Active Substance: LEVOTHYROXINE SODIUM
     Route: 065
  10. SYNTHROID [Suspect]
     Active Substance: LEVOTHYROXINE SODIUM
     Indication: HYPOTHYROIDISM
     Route: 065
  11. NEULEPTIL [Concomitant]
     Active Substance: PERICIAZINE
     Route: 048
  12. DEPAKENE [Interacting]
     Active Substance: VALPROIC ACID
     Route: 048
  13. NEULEPTIL [Concomitant]
     Active Substance: PERICIAZINE
     Indication: OPPOSITIONAL DEFIANT DISORDER
     Dosage: MORNING / NIGHT
     Route: 048
     Dates: start: 2011
  14. NEULEPTIL [Concomitant]
     Active Substance: PERICIAZINE
     Route: 048
  15. ENALAPRIL MALEATE. [Concomitant]
     Active Substance: ENALAPRIL MALEATE
     Indication: HYPERTENSION
     Dosage: DAILY DOSE: 2 TABLET IN THE MORNING
     Route: 048
     Dates: end: 201604

REACTIONS (8)
  - Drug interaction [Unknown]
  - Product use issue [Unknown]
  - Seizure [Recovered/Resolved]
  - Off label use [Unknown]
  - Breast enlargement [Unknown]
  - Seizure [Recovered/Resolved]
  - Weight increased [Unknown]
  - Iron deficiency [Unknown]

NARRATIVE: CASE EVENT DATE: 2014
